FAERS Safety Report 5328784-9 (Version None)
Quarter: 2007Q2

REPORT INFORMATION
  Report Type: 
  Country: None (occurrence: None)
  Receive Date: 20070516
  Receipt Date: 20070516
  Transmission Date: 20071010
  Serious: No
  Sender: FDA-Public Use
  Company Number: None

PATIENT
  Sex: Male
  Weight: 86.1834 kg

DRUGS (1)
  1. DIOVAN [Suspect]
     Indication: HYPERTENSION
     Dosage: 160MG DAILY PO
     Route: 048
     Dates: start: 20070315, end: 20070510

REACTIONS (3)
  - DRUG INEFFECTIVE [None]
  - HEADACHE [None]
  - PHARMACEUTICAL PRODUCT COUNTERFEIT [None]
